FAERS Safety Report 23701930 (Version 1)
Quarter: 2024Q2

REPORT INFORMATION
  Report Type: Spontaneous
  Country: US (occurrence: None)
  Receive Date: 20240402
  Receipt Date: 20240402
  Transmission Date: 20240716
  Serious: Yes (Hospitalization)
  Sender: FDA-Public Use
  Company Number: None

PATIENT
  Sex: Male

DRUGS (1)
  1. MYCOPHENOLIC ACID [Suspect]
     Active Substance: MYCOPHENOLIC ACID
     Indication: Sarcoidosis
     Dosage: FREQ: TAKE 2 TABLETS (1,000 MG TOTAL) BY MOUTH 2 (TWO) TIMES DAILY.
     Route: 048
     Dates: start: 20220317

REACTIONS (2)
  - Abdominal pain upper [None]
  - Therapy interrupted [None]
